FAERS Safety Report 5662756-X (Version None)
Quarter: 2008Q1

REPORT INFORMATION
  Report Type: 
  Country: None (occurrence: None)
  Receive Date: 20080313
  Receipt Date: 20080228
  Transmission Date: 20080703
  Serious: Yes (Hospitalization, Disabling)
  Sender: FDA-Public Use
  Company Number: CO-AMGEN-US263036

PATIENT
  Age: 42 Year
  Sex: Male
  Weight: 72 kg

DRUGS (1)
  1. ENBREL [Suspect]
     Indication: PSORIASIS
     Route: 058
     Dates: start: 20070901, end: 20071201

REACTIONS (3)
  - CONDITION AGGRAVATED [None]
  - OSTEONECROSIS [None]
  - PSORIASIS [None]
